FAERS Safety Report 16083544 (Version 1)
Quarter: 2019Q1

REPORT INFORMATION
  Report Type: Spontaneous
  Country: US (occurrence: US)
  Receive Date: 20190318
  Receipt Date: 20190318
  Transmission Date: 20190418
  Serious: Yes (Hospitalization)
  Sender: FDA-Public Use
  Company Number: US-TEVA-2019-US-1027524

PATIENT
  Sex: Female

DRUGS (1)
  1. OLMESARTAN [Suspect]
     Active Substance: OLMESARTAN
     Indication: BLOOD PRESSURE MEASUREMENT
     Dates: start: 2019

REACTIONS (7)
  - Tachycardia [Unknown]
  - Dyspnoea [Unknown]
  - Ventricular extrasystoles [Unknown]
  - Blood pressure fluctuation [Unknown]
  - Diarrhoea [Unknown]
  - Dehydration [Unknown]
  - Blood magnesium decreased [Unknown]
